FAERS Safety Report 4982261-3 (Version None)
Quarter: 2006Q1

REPORT INFORMATION
  Report Type: 
  Country: None (occurrence: None)
  Receive Date: 20060227
  Receipt Date: 20050406
  Transmission Date: 20060701
  Serious: Yes (Hospitalization, Disabling, Other)
  Sender: FDA-Public Use
  Company Number: WAES 0504USA00771

PATIENT
  Age: 66 Year
  Sex: Female

DRUGS (2)
  1. ZOCOR [Suspect]
     Indication: HYPERLIPIDAEMIA
     Dosage: 80 MG/DAILY/PO
     Route: 048
  2. BIAXIN [Suspect]
     Indication: HELICOBACTER INFECTION

REACTIONS (3)
  - DRUG INTERACTION [None]
  - HELICOBACTER GASTRITIS [None]
  - RHABDOMYOLYSIS [None]
